FAERS Safety Report 9885793 (Version 2)
Quarter: 2014Q1

REPORT INFORMATION
  Report Type: Report from Study
  Country: CA (occurrence: CA)
  Receive Date: 20140210
  Receipt Date: 20140210
  Transmission Date: 20141002
  Serious: Yes (Hospitalization, Other)
  Sender: FDA-Public Use
  Company Number: CA-BRISTOL-MYERS SQUIBB COMPANY-17029463

PATIENT
  Age: 77 Year
  Sex: Female

DRUGS (23)
  1. ORENCIA [Suspect]
     Indication: RHEUMATOID ARTHRITIS
     Dosage: INF7 LAST INF:6SEP12. 2L70269:JUL15?3A77129:JUL15?3A80545,SEP2015;3H64999,APR16?JUL16
     Route: 042
     Dates: start: 20120419
  2. METHOTREXATE [Suspect]
  3. ATORVASTATIN [Concomitant]
  4. PLAVIX [Concomitant]
  5. PANTOPRAZOLE [Concomitant]
  6. BISOPROLOL [Concomitant]
     Dosage: PRO-BISOPROLOL
  7. OXAZEPAM [Concomitant]
  8. PREDNISONE [Concomitant]
  9. VALCYTE [Concomitant]
  10. OLANZAPINE [Concomitant]
  11. FOLIC ACID [Concomitant]
  12. HYDROXYCHLOROQUINE SULFATE [Concomitant]
  13. CELEBREX [Concomitant]
  14. CLONAZEPAM [Concomitant]
  15. ALENDRONATE [Concomitant]
  16. ACETAMINOPHEN [Concomitant]
  17. MSIR [Concomitant]
  18. ACULAR [Concomitant]
  19. SENNOSIDES [Concomitant]
  20. LYRICA [Concomitant]
  21. VOLTAREN [Concomitant]
  22. ACETYLSALICYLIC ACID [Concomitant]
     Dosage: PRO AAS EC
  23. CALCIUM CARBONATE [Concomitant]
     Dosage: CAL 500

REACTIONS (14)
  - Asthenia [Not Recovered/Not Resolved]
  - Pyrexia [Unknown]
  - White blood cell count decreased [Unknown]
  - Haemoglobin decreased [Unknown]
  - Muscular weakness [Not Recovered/Not Resolved]
  - Somnolence [Not Recovered/Not Resolved]
  - Drug ineffective [Unknown]
  - Urine output decreased [Not Recovered/Not Resolved]
  - Urinary retention [Unknown]
  - Abdominal pain upper [Not Recovered/Not Resolved]
  - Back pain [Not Recovered/Not Resolved]
  - Constipation [Not Recovered/Not Resolved]
  - Pain in extremity [Not Recovered/Not Resolved]
  - Fatigue [Unknown]
